FAERS Safety Report 26079536 (Version 1)
Quarter: 2025Q4

REPORT INFORMATION
  Report Type: Spontaneous
  Country: JP (occurrence: JP)
  Receive Date: 20251123
  Receipt Date: 20251123
  Transmission Date: 20260117
  Serious: Yes (Life-Threatening, Other)
  Sender: AMGEN
  Company Number: JP-TAKEDA-2025TJP011644

PATIENT
  Age: 9 Decade
  Sex: Male

DRUGS (5)
  1. VECTIBIX [Suspect]
     Active Substance: PANITUMUMAB
     Indication: Rectal cancer stage IV
     Dosage: UNK
     Route: 065
  2. PALONOSETRON [Suspect]
     Active Substance: PALONOSETRON
     Indication: Product used for unknown indication
     Dosage: UNK
     Route: 065
  3. FLUOROURACIL [Concomitant]
     Active Substance: FLUOROURACIL
     Indication: Rectal cancer stage IV
     Dosage: UNK
     Route: 065
  4. Levofolinate [Concomitant]
     Indication: Rectal cancer stage IV
     Dosage: UNK
     Route: 065
  5. OXALIPLATIN [Concomitant]
     Active Substance: OXALIPLATIN
     Indication: Rectal cancer stage IV
     Dosage: UNK
     Route: 065

REACTIONS (6)
  - Ventricular tachycardia [Unknown]
  - Ventricular fibrillation [Unknown]
  - Cardiac arrest [Unknown]
  - Electrocardiogram QT prolonged [Unknown]
  - Hypokalaemia [Unknown]
  - Hypomagnesaemia [Unknown]
